FAERS Safety Report 8981877 (Version 2)
Quarter: 2013Q1

REPORT INFORMATION
  Report Type: Spontaneous
  Country: NL (occurrence: NL)
  Receive Date: 20121223
  Receipt Date: 20130206
  Transmission Date: 20140127
  Serious: Yes (Hospitalization)
  Sender: FDA-Public Use
  Company Number: PHHY2012NL118469

PATIENT
  Sex: Female

DRUGS (7)
  1. ZOMETA [Suspect]
     Indication: BREAST CANCER METASTATIC
     Dosage: 4 MG, QMO
     Dates: start: 20110412
  2. ZOMETA [Suspect]
     Dosage: 4 MG, QMO
     Dates: start: 20121120
  3. ZOMETA [Suspect]
     Dosage: 4 MG, QMO
     Dates: start: 20121201
  4. ZOMETA [Suspect]
     Dosage: 4 MG, QMO
     Dates: start: 20120327
  5. ZOMETA [Suspect]
     Dosage: 4MG, QMO
     Route: 042
     Dates: start: 20121217
  6. AFINITOR [Suspect]
     Dosage: 5 MG, UNK
  7. FLUCLOXACILLIN [Concomitant]
     Dosage: 500 MG, 4DD1
     Route: 042

REACTIONS (2)
  - Inflammation of wound [Recovering/Resolving]
  - Pyrexia [Recovered/Resolved]
